FAERS Safety Report 20681026 (Version 2)
Quarter: 2023Q1

REPORT INFORMATION
  Report Type: Spontaneous
  Country: PT (occurrence: PT)
  Receive Date: 20220406
  Receipt Date: 20230125
  Transmission Date: 20230418
  Serious: Yes (Hospitalization, Other)
  Sender: FDA-Public Use
  Company Number: PT-RECKITT BENCKISER HEALTHCARE INT LIMITED-RB-086497-2022

PATIENT
  Age: 61 Year
  Sex: Male

DRUGS (1)
  1. IBUPROFEN [Suspect]
     Active Substance: IBUPROFEN
     Indication: Product used for unknown indication
     Dosage: UNK
     Route: 065

REACTIONS (8)
  - Foreign body in throat [Recovering/Resolving]
  - Respiratory failure [Recovering/Resolving]
  - Obstructive airways disorder [Recovering/Resolving]
  - Sinusitis [Recovering/Resolving]
  - Nasal septum perforation [Recovering/Resolving]
  - Anaphylactic reaction [Recovering/Resolving]
  - Wheezing [Recovering/Resolving]
  - Dyspnoea [Recovering/Resolving]
